FAERS Safety Report 5996532-5 (Version None)
Quarter: 2008Q4

REPORT INFORMATION
  Report Type: 
  Country: None (occurrence: None)
  Receive Date: 20081212
  Receipt Date: 20081018
  Transmission Date: 20090506
  Serious: Yes (Other)
  Sender: FDA-Public Use
  Company Number: US-ABBOTT-08P-163-0482591-00

PATIENT
  Sex: Female
  Weight: 69.462 kg

DRUGS (12)
  1. HUMIRA [Suspect]
     Indication: RHEUMATOID ARTHRITIS
     Route: 058
     Dates: start: 20030101, end: 20081009
  2. HUMIRA [Suspect]
     Indication: CROHN'S DISEASE
  3. IBUPROFEN [Suspect]
     Indication: GINGIVAL PAIN
     Route: 048
     Dates: start: 20081016, end: 20081017
  4. ACETYLSALICYLIC ACID SRT [Concomitant]
     Indication: DRUG USE FOR UNKNOWN INDICATION
  5. RABEPRAZOLE SODIUM [Concomitant]
     Indication: CROHN'S DISEASE
  6. RABEPRAZOLE SODIUM [Concomitant]
     Indication: GASTROOESOPHAGEAL REFLUX DISEASE
  7. MESALAMINE [Concomitant]
     Indication: CROHN'S DISEASE
  8. MESALAMINE [Concomitant]
     Indication: GASTROOESOPHAGEAL REFLUX DISEASE
  9. RANITIDINE [Concomitant]
     Indication: CROHN'S DISEASE
  10. RANITIDINE [Concomitant]
     Indication: GASTROOESOPHAGEAL REFLUX DISEASE
  11. CALCIUM-SANDOZ [Concomitant]
     Indication: MINERAL SUPPLEMENTATION
  12. IORN PILL [Concomitant]
     Indication: MINERAL SUPPLEMENTATION

REACTIONS (4)
  - ABDOMINAL PAIN [None]
  - DYSPEPSIA [None]
  - GINGIVAL INFECTION [None]
  - GINGIVAL PAIN [None]
